FAERS Safety Report 13819104 (Version 1)
Quarter: 2017Q3

REPORT INFORMATION
  Report Type: Spontaneous
  Country: US (occurrence: US)
  Receive Date: 20170731
  Receipt Date: 20170731
  Transmission Date: 20171127
  Serious: No
  Sender: FDA-Public Use
  Company Number: None

PATIENT
  Age: 22 Year
  Sex: Female
  Weight: 55.39 kg

DRUGS (1)
  1. NEXPLANON [Suspect]
     Active Substance: ETONOGESTREL

REACTIONS (4)
  - Injection site irritation [None]
  - Injection site swelling [None]
  - Hypersensitivity [None]
  - Injection site pruritus [None]

NARRATIVE: CASE EVENT DATE: 20170606
